FAERS Safety Report 15577742 (Version 2)
Quarter: 2018Q4

REPORT INFORMATION
  Report Type: Spontaneous
  Country: US (occurrence: US)
  Receive Date: 20181102
  Receipt Date: 20181116
  Transmission Date: 20190205
  Serious: No
  Sender: FDA-Public Use
  Company Number: US-CELGENEUS-USA-20181009696

PATIENT
  Age: 58 Year
  Sex: Female

DRUGS (4)
  1. TRAZODONE [Concomitant]
     Active Substance: TRAZODONE HYDROCHLORIDE
     Indication: SLEEP DISORDER
     Route: 065
  2. OTEZLA [Suspect]
     Active Substance: APREMILAST
     Route: 048
     Dates: start: 201810
  3. FLUOXETINE [Concomitant]
     Active Substance: FLUOXETINE HYDROCHLORIDE
     Indication: ATTENTION DEFICIT/HYPERACTIVITY DISORDER
     Route: 065
  4. OTEZLA [Suspect]
     Active Substance: APREMILAST
     Indication: PSORIASIS
     Route: 048
     Dates: start: 2018

REACTIONS (8)
  - Musculoskeletal stiffness [Unknown]
  - Feeding disorder [Unknown]
  - Abdominal pain upper [Unknown]
  - Arthralgia [Unknown]
  - Diarrhoea [Unknown]
  - Vomiting [Unknown]
  - Depression [Unknown]
  - Inflammation [Unknown]

NARRATIVE: CASE EVENT DATE: 20180926
